FAERS Safety Report 15468895 (Version 4)
Quarter: 2019Q2

REPORT INFORMATION
  Report Type: Spontaneous
  Country: US (occurrence: US)
  Receive Date: 20181005
  Receipt Date: 20190523
  Transmission Date: 20190711
  Serious: No
  Sender: FDA-Public Use
  Company Number: US-ASTRAZENECA-2018SF12790

PATIENT
  Age: 61 Year
  Sex: Female
  Weight: 56.7 kg

DRUGS (2)
  1. METFORMIN [Concomitant]
     Active Substance: METFORMIN HYDROCHLORIDE
     Indication: TYPE 2 DIABETES MELLITUS
     Route: 048
  2. BYDUREON [Suspect]
     Active Substance: EXENATIDE
     Indication: TYPE 2 DIABETES MELLITUS
     Route: 058
     Dates: start: 2015

REACTIONS (7)
  - Device issue [Unknown]
  - Injection site pain [Unknown]
  - Memory impairment [Unknown]
  - Incorrect dose administered [Unknown]
  - Cough [Recovered/Resolved]
  - Blood glucose decreased [Unknown]
  - Wrong technique in device usage process [Unknown]

NARRATIVE: CASE EVENT DATE: 2018
